FAERS Safety Report 7743175-9 (Version None)
Quarter: 2011Q3

REPORT INFORMATION
  Report Type: 
  Country: None (occurrence: None)
  Receive Date: 20110912
  Receipt Date: 20110831
  Transmission Date: 20111222
  Serious: Yes (Hospitalization)
  Sender: FDA-Public Use
  Company Number: US-BAYER-201037918NA

PATIENT
  Age: 48 Year
  Sex: Female

DRUGS (7)
  1. YAZ [Suspect]
     Indication: MENSTRUATION IRREGULAR
  2. YAZ [Suspect]
     Indication: ACNE
     Dosage: UNK
     Dates: start: 20070101
  3. ACETAMINOPHEN W/ PROPOXYPHENE HCL [Concomitant]
  4. PRILOSEC [Concomitant]
  5. AZITHROMYCIN [Concomitant]
  6. CYCLOBENZAPRINE [Concomitant]
  7. ZYRTEC [Concomitant]

REACTIONS (4)
  - CEREBROVASCULAR ACCIDENT [None]
  - CEREBRAL VENOUS THROMBOSIS [None]
  - THROMBOSIS [None]
  - CEREBRAL HAEMORRHAGE [None]
